FAERS Safety Report 5522620-3 (Version None)
Quarter: 2007Q4

REPORT INFORMATION
  Report Type: 
  Country: None (occurrence: None)
  Receive Date: 20071120
  Receipt Date: 20071120
  Transmission Date: 20080405
  Serious: Yes (Life-Threatening, Hospitalization)
  Sender: FDA-Public Use
  Company Number: FR-SHR-FR-2007-038744

PATIENT
  Age: 19 Year
  Sex: Female
  Weight: 54 kg

DRUGS (1)
  1. JASMINE (21) [Suspect]
     Indication: OVULATION PAIN
     Dosage: 1 TAB(S), 21D/28D
     Route: 048
     Dates: start: 20040301

REACTIONS (4)
  - CHEST PAIN [None]
  - DEEP VEIN THROMBOSIS [None]
  - PAIN IN EXTREMITY [None]
  - PELVIC VENOUS THROMBOSIS [None]
